FAERS Safety Report 15881641 (Version 3)
Quarter: 2019Q1

REPORT INFORMATION
  Report Type: Spontaneous
  Country: GB (occurrence: GB)
  Receive Date: 20190128
  Receipt Date: 20190206
  Transmission Date: 20190417
  Serious: Yes (Death, Other)
  Sender: FDA-Public Use
  Company Number: GB-PFIZER INC-2019034592

PATIENT
  Age: 49 Year
  Sex: Female

DRUGS (5)
  1. ZOLADEX GYN [Concomitant]
  2. IBRANCE [Suspect]
     Active Substance: PALBOCICLIB
     Dosage: 125 MG, CYCLIC
     Dates: start: 201806
  3. IBRANCE [Suspect]
     Active Substance: PALBOCICLIB
     Dosage: 100 MG, CYCLIC
     Dates: end: 20190108
  4. LETROZOLE. [Concomitant]
     Active Substance: LETROZOLE
  5. DENOSUMAB [Concomitant]
     Active Substance: DENOSUMAB

REACTIONS (5)
  - Pulmonary fibrosis [Unknown]
  - Lung disorder [Unknown]
  - Condition aggravated [Unknown]
  - Neutropenia [Recovered/Resolved]
  - Death [Fatal]

NARRATIVE: CASE EVENT DATE: 201901
